FAERS Safety Report 9650843 (Version 1)
Quarter: 2013Q4

REPORT INFORMATION
  Report Type: Spontaneous
  Country: NO (occurrence: NO)
  Receive Date: 20131029
  Receipt Date: 20131029
  Transmission Date: 20140711
  Serious: Yes (Death)
  Sender: FDA-Public Use
  Company Number: NO-JNJFOC-20131012313

PATIENT
  Sex: Female

DRUGS (10)
  1. DUROGESIC [Suspect]
     Indication: PAIN
     Route: 062
  2. ZOPICLONE [Interacting]
     Indication: PRODUCT USED FOR UNKNOWN INDICATION
     Route: 065
  3. MORFIN [Interacting]
     Indication: PAIN
     Route: 065
  4. INSTANYL [Interacting]
     Indication: LYMPHOMA
     Route: 065
  5. PARACET [Concomitant]
     Route: 065
     Dates: end: 20130624
  6. VALTREX [Concomitant]
     Route: 065
  7. PREDNISOLON [Concomitant]
     Route: 065
  8. ALENDRONIC ACID [Concomitant]
     Route: 065
  9. CALCIGRAN FORTE [Concomitant]
     Route: 065
  10. SOMAC [Concomitant]
     Route: 065

REACTIONS (12)
  - Drug dependence [Fatal]
  - Drug abuse [Fatal]
  - Fatigue [Unknown]
  - Decreased appetite [Unknown]
  - Vomiting [Unknown]
  - Pyrexia [Unknown]
  - Nystagmus [Unknown]
  - Lethargy [Unknown]
  - Erythema [Unknown]
  - Hepatomegaly [Unknown]
  - Alanine aminotransferase increased [Unknown]
  - Drug interaction [Unknown]
